FAERS Safety Report 9515879 (Version 1)
Quarter: 2013Q1

REPORT INFORMATION
  Report Type: Spontaneous
  Country: US (occurrence: None)
  Receive Date: 20130305
  Receipt Date: 20130305
  Transmission Date: 20140127
  Serious: Yes (Other)
  Sender: FDA-Public Use
  Company Number: 163-21880-12113655

PATIENT
  Age: 73 Year
  Sex: Female

DRUGS (11)
  1. REVLIMID [Suspect]
     Indication: PLASMA CELL MYELOMA
     Dosage: 25 MG, 1 IN 1 D, PO
     Route: 048
     Dates: start: 20101005
  2. HYDROMET (ALDORIL) (UNKNOWN) [Concomitant]
  3. LEVOFLOXACIN (LEVOFLOXACIN) (UNKNOWN) [Concomitant]
  4. NATEGLINIDE (NATEGLINIDE) (UNKNOWN) [Concomitant]
  5. OXYCODONE HCL (OXYCODONE HYDROCHLORIDE) (UNKNOWN) [Concomitant]
  6. ZOLPIDEM TARTRATE (ZOLPIDEM TARTRATE) (UNKNOWN) [Concomitant]
  7. FUROSEMIDE (FUROSEMIDE) (UNKNOWN) [Concomitant]
  8. CYMBALTA (DULOXETINE HYDROCHLORIDE) (UNKNOWN) [Concomitant]
  9. LIDODERM (LIDOCAINE) (UNKNOWN) [Concomitant]
  10. ROPINIROLE HCL (ROPINIROLE HYDROCHLORIDE) (UNKNOWN)? [Concomitant]
  11. NAMENDA (MEMANTINE HYDROCHLORIDE0 (UNKNOWN) [Concomitant]

REACTIONS (3)
  - Influenza [None]
  - Pneumonia [None]
  - Full blood count decreased [None]
